FAERS Safety Report 9749928 (Version 1)
Quarter: 2013Q4

REPORT INFORMATION
  Report Type: Spontaneous
  Country: AU (occurrence: AU)
  Receive Date: 20131212
  Receipt Date: 20131212
  Transmission Date: 20140711
  Serious: Yes (Death)
  Sender: FDA-Public Use
  Company Number: AU-PFIZER INC-2013355543

PATIENT
  Age: 78 Year
  Sex: Female

DRUGS (1)
  1. MORPHINE SULFATE [Suspect]
     Indication: PAIN
     Dosage: UNK

REACTIONS (8)
  - Fall [Fatal]
  - Head injury [Fatal]
  - Cerebral haemorrhage [Fatal]
  - Internal injury [Fatal]
  - Arterial stenosis [Fatal]
  - Diaphragmatic injury [Fatal]
  - Pneumonia [Fatal]
  - Overdose [Unknown]
